FAERS Safety Report 18687085 (Version 2)
Quarter: 2021Q2

REPORT INFORMATION
  Report Type: Other
  Country: US (occurrence: US)
  Receive Date: 20201231
  Receipt Date: 20210409
  Transmission Date: 20210717
  Serious: Yes (Other)
  Sender: FDA-Public Use
  Company Number: US-ROCHE-2739065

PATIENT
  Sex: Female
  Weight: 77.63 kg

DRUGS (10)
  1. KADCYLA [Suspect]
     Active Substance: ADO-TRASTUZUMAB EMTANSINE
     Dosage: STOPPED 1.5 YEARS AFTER STARTING
     Route: 042
     Dates: start: 2014, end: 2015
  2. KADCYLA [Suspect]
     Active Substance: ADO-TRASTUZUMAB EMTANSINE
     Dosage: STOPPED ABOUT 2 MONTHS AGO
     Route: 042
     Dates: start: 202006, end: 2021
  3. HERCEPTIN [Suspect]
     Active Substance: TRASTUZUMAB
     Indication: BREAST CANCER STAGE IV
     Dosage: STARTED ABOUT 2 MONTHS AGO
     Route: 042
     Dates: start: 2021
  4. XELODA [Suspect]
     Active Substance: CAPECITABINE
     Indication: BREAST CANCER STAGE IV
     Dosage: STARTED ABOUT 2 MONTHS AGO
     Route: 048
     Dates: start: 2021, end: 20210328
  5. HERCEPTIN [Suspect]
     Active Substance: TRASTUZUMAB
     Indication: BREAST CANCER STAGE IV
     Dosage: ONGOING: UNKNOWN
     Route: 065
  6. XELODA [Suspect]
     Active Substance: CAPECITABINE
     Route: 048
     Dates: start: 20210329
  7. KADCYLA [Suspect]
     Active Substance: ADO-TRASTUZUMAB EMTANSINE
     Indication: HER2 POSITIVE BREAST CANCER
     Dosage: ONGOING:NO
     Route: 042
     Dates: start: 2012, end: 2014
  8. KADCYLA [Suspect]
     Active Substance: ADO-TRASTUZUMAB EMTANSINE
     Dosage: ONGOING:YES
     Route: 042
     Dates: start: 202009
  9. KADCYLA [Suspect]
     Active Substance: ADO-TRASTUZUMAB EMTANSINE
     Indication: BREAST CANCER STAGE IV
     Dosage: ONGOING:NO
     Route: 042
     Dates: start: 202005, end: 202008
  10. TUCATINIB [Suspect]
     Active Substance: TUCATINIB
     Indication: BREAST CANCER STAGE IV
     Dosage: STARTED ABOUT 2 MONTHS AGO
     Route: 048
     Dates: start: 2021

REACTIONS (7)
  - Platelet count decreased [Unknown]
  - Neuropathy peripheral [Unknown]
  - Drug ineffective [Unknown]
  - Amnesia [Not Recovered/Not Resolved]
  - Pericardial effusion [Recovered/Resolved]
  - Pneumonitis [Recovered/Resolved]
  - Syncope [Unknown]

NARRATIVE: CASE EVENT DATE: 2014
